FAERS Safety Report 25051593 (Version 2)
Quarter: 2025Q4

REPORT INFORMATION
  Report Type: Spontaneous
  Country: US (occurrence: US)
  Receive Date: 20250307
  Receipt Date: 20251022
  Transmission Date: 20260118
  Serious: Yes (Other)
  Sender: LEO PHARM
  Company Number: US-LEO Pharma-378053

PATIENT
  Age: 64 Year
  Sex: Male

DRUGS (2)
  1. ADBRY [Suspect]
     Active Substance: TRALOKINUMAB-LDRM
     Indication: Dyshidrotic eczema
     Dosage: TREATMENT IS ONGOING
     Route: 058
     Dates: start: 202409
  2. ADBRY [Suspect]
     Active Substance: TRALOKINUMAB-LDRM
     Indication: Dyshidrotic eczema
     Dosage: TREATMENT IS ONGOING
     Route: 058
     Dates: start: 202409

REACTIONS (5)
  - Lung neoplasm malignant [Unknown]
  - Product prescribing issue [Unknown]
  - Fatigue [Unknown]
  - Asthenia [Unknown]
  - Herpes zoster [Unknown]
